FAERS Safety Report 8902521 (Version 1)
Quarter: 2012Q4

REPORT INFORMATION
  Report Type: Report from Study
  Country: JP (occurrence: JP)
  Receive Date: 20121112
  Receipt Date: 20121112
  Transmission Date: 20130627
  Serious: Yes (Hospitalization, Other)
  Sender: FDA-Public Use
  Company Number: JP-ROCHE-1153448

PATIENT
  Age: 43 Year
  Sex: Male

DRUGS (6)
  1. TOCILIZUMAB [Suspect]
     Indication: CASTLEMAN^S DISEASE
     Route: 041
     Dates: start: 20101116, end: 20110223
  2. TOCILIZUMAB [Suspect]
     Indication: CASTLEMAN^S DISEASE
     Route: 041
     Dates: end: 20110309
  3. TOCILIZUMAB [Suspect]
     Indication: CASTLEMAN^S DISEASE
     Route: 041
     Dates: start: 20101228, end: 20101228
  4. TOCILIZUMAB [Suspect]
     Indication: CASTLEMAN^S DISEASE
     Route: 041
     Dates: start: 20110302, end: 20110302
  5. ISENTRESS [Concomitant]
     Indication: HIV INFECTION
     Route: 048
  6. TRUVADA [Concomitant]
     Indication: HIV INFECTION
     Dosage: TDF 300 mg, FTC 200 mg
     Route: 048

REACTIONS (2)
  - Castleman^s disease [Recovered/Resolved]
  - White blood cell count decreased [Recovered/Resolved]
